FAERS Safety Report 21732041 (Version 1)
Quarter: 2022Q4

REPORT INFORMATION
  Report Type: Spontaneous
  Country: US (occurrence: None)
  Receive Date: 20221214
  Receipt Date: 20221214
  Transmission Date: 20230113
  Serious: Yes (Hospitalization)
  Sender: FDA-Public Use
  Company Number: None

PATIENT
  Age: 28 Year
  Sex: Male
  Weight: 68.9 kg

DRUGS (2)
  1. CYTARABINE [Suspect]
     Active Substance: CYTARABINE
     Dates: end: 20221202
  2. METHOTREXATE [Suspect]
     Active Substance: METHOTREXATE
     Dates: end: 20221201

REACTIONS (2)
  - Epistaxis [None]
  - Platelet count decreased [None]

NARRATIVE: CASE EVENT DATE: 20221210
